FAERS Safety Report 24628707 (Version 3)
Quarter: 2025Q1

REPORT INFORMATION
  Report Type: Report from Study
  Country: US (occurrence: US)
  Receive Date: 20241117
  Receipt Date: 20250312
  Transmission Date: 20250408
  Serious: Yes (Other)
  Sender: ABBVIE
  Company Number: US-ABBVIE-6001621

PATIENT
  Age: 70 Year
  Sex: Female

DRUGS (2)
  1. RINVOQ [Suspect]
     Active Substance: UPADACITINIB
     Indication: Dermatitis atopic
     Route: 048
     Dates: start: 2021
  2. RINVOQ [Suspect]
     Active Substance: UPADACITINIB
     Indication: Dermatitis atopic
     Route: 048

REACTIONS (10)
  - Cerebral haemorrhage [Unknown]
  - Fall [Unknown]
  - Balance disorder [Not Recovered/Not Resolved]
  - Concussion [Unknown]
  - Impaired driving ability [Unknown]
  - Ulcer [Unknown]
  - Dermatitis atopic [Unknown]
  - Rash macular [Unknown]
  - Insomnia [Unknown]
  - Loss of consciousness [Unknown]

NARRATIVE: CASE EVENT DATE: 20241001
